FAERS Safety Report 10732622 (Version 3)
Quarter: 2015Q4

REPORT INFORMATION
  Report Type: Spontaneous
  Country: US (occurrence: US)
  Receive Date: 20150123
  Receipt Date: 20151015
  Transmission Date: 20160304
  Serious: Yes (Other)
  Sender: FDA-Public Use
  Company Number: US-SA-2014SA150332

PATIENT
  Age: 48 Year
  Sex: Female
  Weight: 79.37 kg

DRUGS (2)
  1. FABRAZYME [Suspect]
     Active Substance: AGALSIDASE BETA
     Indication: FABRY^S DISEASE
     Route: 041
     Dates: start: 20130422
  2. FABRAZYME [Suspect]
     Active Substance: AGALSIDASE BETA
     Indication: FABRY^S DISEASE
     Route: 041

REACTIONS (5)
  - Aphasia [Not Recovered/Not Resolved]
  - Amnesia [Not Recovered/Not Resolved]
  - Pneumonia [Recovering/Resolving]
  - Pruritus [Recovered/Resolved]
  - Urticaria [Recovered/Resolved]

NARRATIVE: CASE EVENT DATE: 2013
